FAERS Safety Report 6154208-8 (Version None)
Quarter: 2009Q2

REPORT INFORMATION
  Report Type: 
  Country: None (occurrence: None)
  Receive Date: 20090414
  Receipt Date: 20090406
  Transmission Date: 20091009
  Serious: Yes (Hospitalization)
  Sender: FDA-Public Use
  Company Number: JP-WYE-H08873509

PATIENT
  Age: 52 Year
  Sex: Female

DRUGS (8)
  1. ZOSYN [Suspect]
     Indication: PERITONITIS BACTERIAL
     Dosage: 13.5 GRAMS DAILY
     Route: 041
     Dates: start: 20090309
  2. URSO 250 [Concomitant]
     Route: 048
  3. TORASEMIDE [Concomitant]
     Route: 048
  4. PREDONINE [Concomitant]
     Route: 048
  5. ALDACTONE [Concomitant]
     Route: 048
  6. LASIX [Concomitant]
     Route: 048
  7. ASPARTATE POTASSIUM [Concomitant]
     Route: 048
  8. KAYTWO [Concomitant]
     Route: 048

REACTIONS (1)
  - INTERSTITIAL LUNG DISEASE [None]
